FAERS Safety Report 5726641-7 (Version None)
Quarter: 2008Q2

REPORT INFORMATION
  Report Type: 
  Country: None (occurrence: None)
  Receive Date: 20080502
  Receipt Date: 20080425
  Transmission Date: 20081010
  Serious: Yes (Life-Threatening, Congenital Anomaly)
  Sender: FDA-Public Use
  Company Number: GB-ABBOTT-08P-167-0449081-00

PATIENT
  Sex: Female

DRUGS (1)
  1. VALPROATE SODIUM [Suspect]
     Indication: DRUG EXPOSURE DURING PREGNANCY
     Route: 064

REACTIONS (27)
  - ABNORMAL BEHAVIOUR [None]
  - AGGRESSION [None]
  - BODY DYSMORPHIC DISORDER [None]
  - BRONCHIOLITIS [None]
  - CONGENITAL ELEVATION OF SCAPULA [None]
  - CONGENITAL FLAT FEET [None]
  - CONGENITAL FOOT MALFORMATION [None]
  - CONGENITAL HAND MALFORMATION [None]
  - CONGENITAL NAIL DISORDER [None]
  - CONGENITAL NOSE MALFORMATION [None]
  - CONGENITAL ORAL MALFORMATION [None]
  - CROUP INFECTIOUS [None]
  - DEFORMITY THORAX [None]
  - DEVELOPMENTAL DELAY [None]
  - DISTURBANCE IN ATTENTION [None]
  - DRUG EXPOSURE DURING PREGNANCY [None]
  - DYSMORPHISM [None]
  - EAR MALFORMATION [None]
  - ECZEMA [None]
  - FOETAL ANTICONVULSANT SYNDROME [None]
  - GAIT DISTURBANCE [None]
  - HYPERMOBILITY SYNDROME [None]
  - MYOPIA [None]
  - NIPPLE DISORDER [None]
  - RETRACTED NIPPLE [None]
  - SKULL MALFORMATION [None]
  - SPEECH DISORDER DEVELOPMENTAL [None]
